FAERS Safety Report 14967658 (Version 1)
Quarter: 2018Q2

REPORT INFORMATION
  Report Type: Spontaneous
  Country: HU (occurrence: HU)
  Receive Date: 20180604
  Receipt Date: 20180604
  Transmission Date: 20180711
  Serious: Yes (Hospitalization)
  Sender: FDA-Public Use
  Company Number: HU-ROCHE-2133796

PATIENT
  Age: 12 Year
  Sex: Female

DRUGS (3)
  1. RUBOPHEN [Concomitant]
  2. ALGOPYRIN [Concomitant]
     Active Substance: METAMIZOLE SODIUM
  3. CLONAZEPAM. [Suspect]
     Active Substance: CLONAZEPAM
     Indication: PRODUCT USED FOR UNKNOWN INDICATION
     Route: 065

REACTIONS (1)
  - Toxicity to various agents [Unknown]
